FAERS Safety Report 17271265 (Version 4)
Quarter: 2020Q4

REPORT INFORMATION
  Report Type: Other
  Country: CA (occurrence: CA)
  Receive Date: 20200115
  Receipt Date: 20201007
  Transmission Date: 20210113
  Serious: Yes (Hospitalization, Other)
  Sender: FDA-Public Use
  Company Number: CA-ROCHE-2522576

PATIENT
  Age: 17 Year
  Sex: Male

DRUGS (4)
  1. XOLAIR [Suspect]
     Active Substance: OMALIZUMAB
     Route: 058
     Dates: start: 20200106
  2. PREDNISONE. [Concomitant]
     Active Substance: PREDNISONE
     Indication: PRODUCT USED FOR UNKNOWN INDICATION
     Route: 065
  3. XOLAIR [Suspect]
     Active Substance: OMALIZUMAB
     Indication: ASTHMA
     Route: 058
     Dates: start: 20100212
  4. XOLAIR [Suspect]
     Active Substance: OMALIZUMAB
     Route: 058

REACTIONS (12)
  - Vision blurred [Unknown]
  - Lower respiratory tract infection [Unknown]
  - Pyrexia [Unknown]
  - Weight increased [Unknown]
  - Facial paralysis [Unknown]
  - Somnolence [Unknown]
  - Skin disorder [Unknown]
  - Asthma [Unknown]
  - Tonsillitis [Recovered/Resolved]
  - Fatigue [Unknown]
  - Sepsis [Unknown]
  - Injection site pain [Unknown]

NARRATIVE: CASE EVENT DATE: 20100901
